FAERS Safety Report 7062840-2 (Version None)
Quarter: 2010Q4

REPORT INFORMATION
  Report Type: 
  Country: None (occurrence: None)
  Receive Date: 20101026
  Receipt Date: 20100225
  Transmission Date: 20110411
  Serious: No
  Sender: FDA-Public Use
  Company Number: US-PFIZER INC-2010003069

PATIENT
  Sex: Female
  Weight: 93 kg

DRUGS (10)
  1. LIPITOR [Suspect]
     Indication: BLOOD CHOLESTEROL INCREASED
     Dosage: 20 MG, 1X/DAY
     Route: 048
  2. TRIAMTERENE HYDROCHLORIDE [Concomitant]
     Indication: HYPERTENSION
     Dosage: [TRIAMTERENE, 37.5 MG]/[ HYDROCHLOROTHIAZIDE, 25 MG]
  3. TOPROL-XL [Concomitant]
     Indication: HYPERTENSION
     Dosage: 50 MG, 1X/DAY
  4. LISINOPRIL [Concomitant]
     Indication: BLOOD PRESSURE ABNORMAL
     Dosage: 5 MG, 2X/DAY
  5. LISINOPRIL [Concomitant]
     Indication: ATRIAL FIBRILLATION
  6. DILTIAZEM HYDROCHLORIDE [Concomitant]
     Indication: HYPERTENSION
     Dosage: 240 MG, 1X/DAY
  7. WARFARIN SODIUM [Concomitant]
     Indication: ATRIAL FIBRILLATION
     Dosage: 2 MG, 1X/DAY
  8. METFORMIN [Concomitant]
     Indication: DIABETES MELLITUS
     Dosage: 500 MG, 1X/DAY
  9. SITAGLIPTIN [Concomitant]
     Indication: DIABETES MELLITUS
     Dosage: 50 MG, 1X/DAY
  10. LEVOTHYROXINE SODIUM [Concomitant]
     Indication: THYROID DISORDER
     Dosage: 75 UG, 1X/DAY

REACTIONS (2)
  - ARTHRALGIA [None]
  - MUSCULOSKELETAL STIFFNESS [None]
